FAERS Safety Report 17190899 (Version 1)
Quarter: 2019Q4

REPORT INFORMATION
  Report Type: Spontaneous
  Country: US (occurrence: US)
  Receive Date: 20191220
  Receipt Date: 20191220
  Transmission Date: 20200122
  Serious: Yes (Hospitalization)
  Sender: FDA-Public Use
  Company Number: None

PATIENT
  Age: 40 Year
  Sex: Male

DRUGS (7)
  1. RANITIDINE TAB 150MG [Concomitant]
     Dates: start: 20190314
  2. PREDNISONE TAB 10MG [Concomitant]
     Active Substance: PREDNISONE
     Dates: start: 20191217
  3. PREDNISONE TAB 5MG11/25/2019 [Concomitant]
  4. OMEPRAZOLE CAP 20MG [Concomitant]
     Active Substance: OMEPRAZOLE
     Dates: start: 20191014
  5. LEVOTHROXIN TAB 125MCG [Concomitant]
     Dates: start: 20190301
  6. FEROSUL TAB 325MG [Concomitant]
     Dates: start: 20191014
  7. HUMIRA [Suspect]
     Active Substance: ADALIMUMAB
     Indication: PSORIATIC ARTHROPATHY
     Dosage: ?          OTHER FREQUENCY:EVERY 7 DAYS;?
     Route: 058
     Dates: start: 20190827

REACTIONS (2)
  - Therapy cessation [None]
  - Malaise [None]

NARRATIVE: CASE EVENT DATE: 20191218
